FAERS Safety Report 8343174-2 (Version None)
Quarter: 2012Q1

REPORT INFORMATION
  Report Type: 
  Country: None (occurrence: None)
  Receive Date: 20120330
  Receipt Date: 20110317
  Transmission Date: 20120608
  Serious: Yes (Other)
  Sender: FDA-Public Use
  Company Number: PHHY2011US22604

PATIENT
  Sex: Male
  Weight: 68 kg

DRUGS (5)
  1. NAMENDA [Concomitant]
  2. NAC (ACETYLCYSTEINE) [Concomitant]
  3. VITAMINS (NO INGREDIENTS/SUBSTANCES) [Concomitant]
  4. PAXIL [Concomitant]
  5. EXELON [Suspect]
     Indication: DEMENTIA
     Dosage: 4.6 MG, QD, TRANSDERMAL
     Route: 062
     Dates: start: 20110112, end: 20110112

REACTIONS (3)
  - MUSCLE CONTRACTIONS INVOLUNTARY [None]
  - DYSTONIA [None]
  - EXTRAPYRAMIDAL DISORDER [None]
